FAERS Safety Report 9158534 (Version 2)
Quarter: 2013Q1

REPORT INFORMATION
  Report Type: Report from Study
  Country: DE (occurrence: DE)
  Receive Date: 20130312
  Receipt Date: 20130325
  Transmission Date: 20140127
  Serious: Yes (Death)
  Sender: FDA-Public Use
  Company Number: DE-ACTELION-A-US2013-80503

PATIENT
  Age: 79 Year
  Sex: Male

DRUGS (8)
  1. VENTAVIS [Suspect]
     Indication: PULMONARY ARTERIAL HYPERTENSION
     Dosage: 2.5 ?G, Q4HRS
     Route: 055
     Dates: start: 20130125
  2. TRACLEER [Concomitant]
  3. SILDENAFIL [Concomitant]
  4. LASIX [Concomitant]
  5. HCT [Concomitant]
  6. KALINOR [Concomitant]
  7. THYRONAJOD [Concomitant]
  8. MARCUMAR [Concomitant]

REACTIONS (1)
  - Acute right ventricular failure [Fatal]
